FAERS Safety Report 9127241 (Version 1)
Quarter: 2013Q1

REPORT INFORMATION
  Report Type: Spontaneous
  Country: US (occurrence: US)
  Receive Date: 20130228
  Receipt Date: 20130228
  Transmission Date: 20140127
  Serious: No
  Sender: FDA-Public Use
  Company Number: US-GLAXOSMITHKLINE-A0963532A

PATIENT
  Age: 48 Year
  Sex: Female

DRUGS (2)
  1. LAMICTAL [Suspect]
     Indication: ANXIETY DISORDER
     Dosage: 100MG PER DAY
     Route: 048
     Dates: start: 201112
  2. WELLBUTRIN [Concomitant]
     Route: 065

REACTIONS (1)
  - Rash [Not Recovered/Not Resolved]
